FAERS Safety Report 6595179-X (Version None)
Quarter: 2010Q1

REPORT INFORMATION
  Report Type: 
  Country: None (occurrence: None)
  Receive Date: 20100212
  Receipt Date: 20100127
  Transmission Date: 20100710
  Serious: Yes (Hospitalization, Other)
  Sender: FDA-Public Use
  Company Number: 2009-191448-NL

PATIENT
  Age: 28 Year
  Sex: Female
  Weight: 68.9 kg

DRUGS (1)
  1. IMPLANON [Suspect]
     Indication: CONTRACEPTION
     Dosage: 1 DF; ; SBDE
     Route: 059
     Dates: start: 20070403, end: 20090212

REACTIONS (4)
  - ABORTION MISSED [None]
  - DRUG EXPOSURE DURING PREGNANCY [None]
  - HAEMORRHAGE [None]
  - PREGNANCY WITH IMPLANT CONTRACEPTIVE [None]
